FAERS Safety Report 8111319-5 (Version None)
Quarter: 2012Q1

REPORT INFORMATION
  Report Type: 
  Country: None (occurrence: None)
  Receive Date: 20120203
  Receipt Date: 20110825
  Transmission Date: 20120608
  Serious: No
  Sender: FDA-Public Use
  Company Number: US-GLAXOSMITHKLINE-A0942915A

PATIENT
  Age: 35 Year
  Sex: Female
  Weight: 79.5 kg

DRUGS (1)
  1. LAMICTAL [Suspect]
     Indication: PRODUCT USED FOR UNKNOWN INDICATION
     Dosage: 25MG UNKNOWN
     Dates: start: 20110808, end: 20110816

REACTIONS (3)
  - HYPERSENSITIVITY [None]
  - DIZZINESS [None]
  - RASH [None]
